FAERS Safety Report 11120886 (Version 3)
Quarter: 2015Q2

REPORT INFORMATION
  Report Type: Not Available
  Country: JP (occurrence: JP)
  Receive Date: 20150519
  Receipt Date: 20150612
  Transmission Date: 20150821
  Serious: Yes (Life-Threatening, Other)
  Sender: FDA-Public Use
  Company Number: JP-BEH-2015051060

PATIENT
  Age: 3 Month
  Sex: Male
  Weight: 5.7 kg

DRUGS (2)
  1. ALBUMINAR 25% [Suspect]
     Active Substance: ALBUMIN (HUMAN)
     Route: 042
     Dates: start: 20150325, end: 20150325
  2. ALBUMINAR 25% [Suspect]
     Active Substance: ALBUMIN (HUMAN)
     Indication: VOLUME BLOOD
     Dates: start: 20150324

REACTIONS (7)
  - Flushing [Recovered/Resolved]
  - Blood pressure decreased [Recovered/Resolved]
  - Blood pressure decreased [Recovered/Resolved]
  - Flushing [Recovered/Resolved]
  - Anaphylactic reaction [Recovered/Resolved]
  - Shock [Recovered/Resolved]
  - Heart rate decreased [Recovered/Resolved]

NARRATIVE: CASE EVENT DATE: 20150325
